FAERS Safety Report 6584647-2 (Version None)
Quarter: 2010Q1

REPORT INFORMATION
  Report Type: 
  Country: None (occurrence: None)
  Receive Date: 20100204
  Receipt Date: 20100121
  Transmission Date: 20100710
  Serious: Yes (Other)
  Sender: FDA-Public Use
  Company Number: CA-1180682

PATIENT

DRUGS (1)
  1. VIGAMOX [Suspect]
     Dosage: OPHTHALMIC
     Route: 047

REACTIONS (1)
  - ENDOPHTHALMITIS [None]
